FAERS Safety Report 9357124 (Version 2)
Quarter: 2013Q3

REPORT INFORMATION
  Report Type: Spontaneous
  Country: US (occurrence: None)
  Receive Date: 20130617
  Receipt Date: 20130814
  Transmission Date: 20140515
  Serious: Yes (Hospitalization)
  Sender: FDA-Public Use
  Company Number: ACO_36652_2013

PATIENT
  Age: 44 Year
  Sex: Male

DRUGS (7)
  1. AMPYRA [Suspect]
     Indication: PRODUCT USED FOR UNKNOWN INDICATION
  2. AVONEX (INTERFERON BETA-1A) [Concomitant]
  3. AVONEX (INTERFERON BETA-1A) [Concomitant]
  4. AMANTADINE (AMANTADINE HYDROCHLORIDE) [Concomitant]
  5. AMLODIPINE (AMLODIPINE) [Concomitant]
  6. ZANAFLEX (TIZANIDINE HYDROCHLORIDE) [Concomitant]
  7. NAPROSYN (NAPROXEN) [Concomitant]

REACTIONS (14)
  - Convulsion [None]
  - Renal failure acute [None]
  - Vital functions abnormal [None]
  - Dehydration [None]
  - Peroneal nerve palsy [None]
  - Amnesia [None]
  - Hypertension [None]
  - Multiple sclerosis relapse [None]
  - Red blood cell count abnormal [None]
  - Haematocrit abnormal [None]
  - Haemoglobin abnormal [None]
  - Eosinophil count abnormal [None]
  - Blood glucose abnormal [None]
  - Blood calcium abnormal [None]
